FAERS Safety Report 23649527 (Version 16)
Quarter: 2024Q3

REPORT INFORMATION
  Report Type: Report from Study
  Country: CA (occurrence: CA)
  Receive Date: 20240319
  Receipt Date: 20240710
  Transmission Date: 20241016
  Serious: Yes (Hospitalization, Other)
  Sender: HLS THERAPEUTICS
  Company Number: CA-HLS-202400716

PATIENT
  Age: 68 Year
  Sex: Female

DRUGS (3)
  1. CLOZARIL [Suspect]
     Active Substance: CLOZAPINE
     Indication: Product used for unknown indication
     Route: 065
     Dates: end: 20240626
  2. CLOZARIL [Suspect]
     Active Substance: CLOZAPINE
     Indication: Product used for unknown indication
     Route: 048
     Dates: start: 20240308, end: 20240524
  3. CLOZARIL [Suspect]
     Active Substance: CLOZAPINE
     Indication: Product used for unknown indication
     Dosage: RESTARTED AND DOSE HAD BEEN TITRATED VERY SLOWLY. PATIENT AT 75MG TWICE DAILY AT THE MOMENT
     Route: 065

REACTIONS (10)
  - Neutropenia [Recovered/Resolved]
  - Neutrophil count increased [Recovered/Resolved]
  - Chronic lymphocytic leukaemia [Unknown]
  - Immunodeficiency [Unknown]
  - Rash [Unknown]
  - Sedation [Unknown]
  - Pneumonia [Unknown]
  - Tachycardia [Unknown]
  - Leukocytosis [Not Recovered/Not Resolved]
  - Asthenia [Unknown]

NARRATIVE: CASE EVENT DATE: 20240315
